FAERS Safety Report 19690437 (Version 1)
Quarter: 2021Q3

REPORT INFORMATION
  Report Type: Spontaneous
  Country: US (occurrence: US)
  Receive Date: 20210811
  Receipt Date: 20210811
  Transmission Date: 20211014
  Serious: No
  Sender: FDA-Public Use
  Company Number: None

PATIENT

DRUGS (1)
  1. SCOPOLAMINE PATCHES [Suspect]
     Active Substance: SCOPOLAMINE

REACTIONS (3)
  - Product label issue [None]
  - Product packaging issue [None]
  - Product use complaint [None]
